FAERS Safety Report 10239811 (Version 2)
Quarter: 2014Q2

REPORT INFORMATION
  Report Type: Spontaneous
  Country: CA (occurrence: CA)
  Receive Date: 20140616
  Receipt Date: 20140625
  Transmission Date: 20141212
  Serious: No
  Sender: FDA-Public Use
  Company Number: CA-B.I. PHARMACEUTICALS,INC./RIDGEFIELD-2014-BI-26654CN

PATIENT
  Sex: Female

DRUGS (7)
  1. SPIRIVA [Suspect]
     Indication: CHRONIC OBSTRUCTIVE PULMONARY DISEASE
     Route: 055
  2. TIMOP [Concomitant]
     Indication: OCULAR HYPERTENSION
     Route: 031
     Dates: end: 201406
  3. AZOPT [Concomitant]
     Indication: OCULAR HYPERTENSION
     Route: 065
  4. APO HYDROCHLOROTHIAZIDE [Concomitant]
     Indication: HYPERTENSION
     Route: 065
  5. DIOVAN [Concomitant]
     Indication: HYPERTENSION
     Dosage: 80 MG
     Route: 065
  6. ISOPTIN [Concomitant]
     Indication: HEART RATE INCREASED
     Dosage: 240 MG
     Route: 065
  7. ISOPTIN [Concomitant]
     Indication: HYPERTENSION
     Dosage: 180 MG
     Route: 065

REACTIONS (2)
  - Oxygen saturation decreased [Recovered/Resolved]
  - Hypertension [Recovered/Resolved]
